FAERS Safety Report 15108753 (Version 1)
Quarter: 2018Q3

REPORT INFORMATION
  Report Type: Spontaneous
  Country: CA (occurrence: CA)
  Receive Date: 20180705
  Receipt Date: 20180705
  Transmission Date: 20181010
  Serious: Yes (Other)
  Sender: FDA-Public Use
  Company Number: CA-SUN PHARMACEUTICAL INDUSTRIES LTD-2018US-177026

PATIENT
  Age: 56 Year
  Sex: Female

DRUGS (1)
  1. VALPROIC ACID. [Suspect]
     Active Substance: VALPROIC ACID
     Indication: PRODUCT USED FOR UNKNOWN INDICATION
     Dosage: CHRONICALLY TAKING VALPROIC ACID
     Route: 065

REACTIONS (3)
  - Carnitine deficiency [Recovered/Resolved]
  - Hyperlactacidaemia [Recovered/Resolved]
  - Malnutrition [Unknown]
